FAERS Safety Report 21766095 (Version 1)
Quarter: 2022Q4

REPORT INFORMATION
  Report Type: Spontaneous
  Country: HR (occurrence: HR)
  Receive Date: 20221222
  Receipt Date: 20221222
  Transmission Date: 20230113
  Serious: Yes (Other)
  Sender: FDA-Public Use
  Company Number: None

PATIENT
  Age: 62 Year
  Sex: Female
  Weight: 80 kg

DRUGS (4)
  1. ALPRAZOLAM [Suspect]
     Active Substance: ALPRAZOLAM
     Indication: Product used for unknown indication
     Dosage: 10 DOSAGE FORM, QD, 1 DF = 1 TABLET
     Route: 048
     Dates: start: 20220923, end: 20220923
  2. PREGABALIN [Suspect]
     Active Substance: PREGABALIN
     Indication: Product used for unknown indication
     Dosage: 10 DOSAGE FORM, QD, 1 DF = 1 TABLET
     Route: 048
     Dates: start: 20220923, end: 20220923
  3. CARBIDOPA\ENTACAPONE\LEVODOPA [Suspect]
     Active Substance: CARBIDOPA\ENTACAPONE\LEVODOPA
     Indication: Product used for unknown indication
     Dosage: 10 DOSAGE FORM, QD, 1 DF = 1 TABLET
     Route: 048
     Dates: start: 20220923, end: 20220923
  4. ESCITALOPRAM [Suspect]
     Active Substance: ESCITALOPRAM OXALATE
     Indication: Product used for unknown indication
     Dosage: 10 DOSAGE FORM, QD, 1 DF = 1 TABLET
     Route: 048
     Dates: start: 20220923, end: 20220923

REACTIONS (4)
  - Oxygen saturation decreased [Unknown]
  - Slow response to stimuli [Unknown]
  - Somnolence [Unknown]
  - Overdose [Unknown]

NARRATIVE: CASE EVENT DATE: 20220923
